FAERS Safety Report 6043535-0 (Version None)
Quarter: 2009Q1

REPORT INFORMATION
  Report Type: 
  Country: None (occurrence: None)
  Receive Date: 20090115
  Receipt Date: 20081230
  Transmission Date: 20090719
  Serious: Yes (Death)
  Sender: FDA-Public Use
  Company Number: 8040944

PATIENT
  Age: 69 Year
  Sex: Male

DRUGS (10)
  1. PREDNISOLONE [Suspect]
  2. RITUXIMAB [Suspect]
  3. MITOXANTRONE [Suspect]
  4. CYCLOPHOSPHAMIDE [Suspect]
  5. ETOPOSIDE [Suspect]
  6. VINCRISTINE [Suspect]
  7. WARFARIN [Concomitant]
  8. CANDESARTAN CILEXETIL [Concomitant]
  9. ..................... [Concomitant]
  10. OMEPRAZOLE [Concomitant]

REACTIONS (10)
  - AMINO ACID LEVEL INCREASED [None]
  - CONTINUOUS HAEMODIAFILTRATION [None]
  - DRUG EFFECT DECREASED [None]
  - ENCEPHALOPATHY [None]
  - HEPATIC FUNCTION ABNORMAL [None]
  - HYPERAMMONAEMIC ENCEPHALOPATHY [None]
  - METABOLIC ACIDOSIS [None]
  - NON-HODGKIN'S LYMPHOMA RECURRENT [None]
  - NORMOCHROMIC NORMOCYTIC ANAEMIA [None]
  - RESPIRATORY ALKALOSIS [None]
